FAERS Safety Report 5898038-0 (Version None)
Quarter: 2008Q3

REPORT INFORMATION
  Report Type: 
  Country: None (occurrence: None)
  Receive Date: 20080924
  Receipt Date: 20080924
  Transmission Date: 20090109
  Serious: Yes (Hospitalization)
  Sender: FDA-Public Use
  Company Number: None

PATIENT
  Sex: Female
  Weight: 99 kg

DRUGS (5)
  1. TEMOZOLOMIDE [Suspect]
     Dosage: 5880 MG
  2. CIPROFLOXACIN HCL [Concomitant]
  3. LACTULOSE [Concomitant]
  4. METACLOPRAMIDE [Concomitant]
  5. ONDANSETRON [Concomitant]

REACTIONS (2)
  - PANCYTOPENIA [None]
  - SEPSIS [None]
